FAERS Safety Report 5564584-2 (Version None)
Quarter: 2007Q4

REPORT INFORMATION
  Report Type: 
  Country: None (occurrence: None)
  Receive Date: 20071218
  Receipt Date: 20071207
  Transmission Date: 20080405
  Serious: Yes (Death, Life-Threatening)
  Sender: FDA-Public Use
  Company Number: IL-AMGEN-UK256535

PATIENT

DRUGS (1)
  1. NEULASTIM [Suspect]
     Indication: CHEMOTHERAPY

REACTIONS (3)
  - DRUG INEFFECTIVE [None]
  - NEUTROPENIA [None]
  - SEPTIC SHOCK [None]
